FAERS Safety Report 15341930 (Version 2)
Quarter: 2020Q2

REPORT INFORMATION
  Report Type: Spontaneous
  Country: US (occurrence: US)
  Receive Date: 20180901
  Receipt Date: 20200610
  Transmission Date: 20200713
  Serious: Yes (Other)
  Sender: FDA-Public Use
  Company Number: US-AMGEN-USASP2018118935

PATIENT
  Age: 81 Year
  Sex: Female

DRUGS (4)
  1. PROLIA [Suspect]
     Active Substance: DENOSUMAB
     Indication: PRODUCT USED FOR UNKNOWN INDICATION
     Dosage: UNK, Q6MO
     Route: 065
  2. LEVOTHYROXINE. [Concomitant]
     Active Substance: LEVOTHYROXINE
     Dosage: 100 MUG, QD
  3. CALCIUM [Concomitant]
     Active Substance: CALCIUM
     Dosage: 1000 TO 1200 MG, UNK
  4. VITAMIN D3 [Concomitant]
     Active Substance: CHOLECALCIFEROL
     Dosage: 5000 IU, QD

REACTIONS (7)
  - Hypercalcaemia [Recovered/Resolved]
  - Product dose omission [Unknown]
  - Osteocalcin decreased [Unknown]
  - C-telopeptide increased [Not Recovered/Not Resolved]
  - Serum procollagen type I N-terminal propeptide decreased [Unknown]
  - Pathological fracture [Unknown]
  - Hyperparathyroidism secondary [Unknown]
